FAERS Safety Report 10557063 (Version 2)
Quarter: 2015Q2

REPORT INFORMATION
  Report Type: Report from Study
  Country: TR (occurrence: TR)
  Receive Date: 20141031
  Receipt Date: 20150527
  Transmission Date: 20150821
  Serious: Yes (Hospitalization, Congenital Anomaly)
  Sender: FDA-Public Use
  Company Number: TR-NOVOPROD-426625

PATIENT
  Age: 1 Day
  Sex: Female
  Weight: 2.9 kg

DRUGS (2)
  1. LEVOTIRON [Concomitant]
     Active Substance: LEVOTHYROXINE SODIUM
     Indication: HYPOTHYROIDISM
     Dosage: 1X2
     Route: 064
     Dates: start: 20131106, end: 20140803
  2. NOVORAPID [Suspect]
     Active Substance: INSULIN ASPART
     Indication: GESTATIONAL DIABETES
     Dosage: 18 U, QD
     Route: 064
     Dates: start: 20140430, end: 20140803

REACTIONS (2)
  - Gastrointestinal malformation [Recovered/Resolved with Sequelae]
  - Foetal exposure during pregnancy [Recovered/Resolved]

NARRATIVE: CASE EVENT DATE: 20140430
